FAERS Safety Report 5656557-6 (Version None)
Quarter: 2008Q1

REPORT INFORMATION
  Report Type: 
  Country: None (occurrence: None)
  Receive Date: 20080310
  Receipt Date: 20080304
  Transmission Date: 20080703
  Serious: Yes (Hospitalization)
  Sender: FDA-Public Use
  Company Number: JP-BRISTOL-MYERS SQUIBB COMPANY-14101083

PATIENT
  Age: 20 Year
  Sex: Female

DRUGS (2)
  1. RESLIN [Suspect]
     Route: 048
  2. LENDORMIN [Suspect]
     Route: 048

REACTIONS (2)
  - COMA [None]
  - SUICIDE ATTEMPT [None]
